FAERS Safety Report 8016201 (Version 2)
Quarter: 2013Q4

REPORT INFORMATION
  Report Type: Spontaneous
  Country: US (occurrence: US)
  Receive Date: 20110630
  Receipt Date: 20131024
  Transmission Date: 20140711
  Serious: Yes (Other)
  Sender: FDA-Public Use
  Company Number: US-JNJFOC-20110610109

PATIENT
  Age: 26 Year
  Sex: Female

DRUGS (2)
  1. RISPERIDONE [Suspect]
     Indication: BIPOLAR DISORDER
     Route: 048
     Dates: start: 200901
  2. SERTRALINE [Concomitant]
     Indication: DEPRESSION
     Dosage: 100 MG ONCE DAILY
     Route: 048
     Dates: start: 2009

REACTIONS (7)
  - Premature labour [Recovered/Resolved]
  - Exposure during pregnancy [Recovered/Resolved]
  - Depression [Unknown]
  - Vision blurred [Not Recovered/Not Resolved]
  - Amenorrhoea [Not Recovered/Not Resolved]
  - Galactorrhoea [Not Recovered/Not Resolved]
  - Product odour abnormal [Unknown]
